FAERS Safety Report 10202638 (Version 1)
Quarter: 2014Q2

REPORT INFORMATION
  Report Type: Spontaneous
  Country: US (occurrence: US)
  Receive Date: 20140528
  Receipt Date: 20140528
  Transmission Date: 20141212
  Serious: Yes (Hospitalization)
  Sender: FDA-Public Use
  Company Number: US-BAYER-2014-074926

PATIENT
  Age: 56 Year
  Sex: Female

DRUGS (20)
  1. ALEVE TABLET [Suspect]
     Indication: ABDOMINAL PAIN
     Dosage: UNK
     Dates: start: 20140326
  2. TAS 120 [Suspect]
     Indication: HEPATIC CANCER
     Dosage: 60 MG, QD
     Route: 048
     Dates: start: 20140206, end: 20140206
  3. TAS 102 [Suspect]
     Indication: HEPATIC CANCER
     Dosage: 60 MG, QD
     Dates: start: 20140213, end: 20140220
  4. TAS 102 [Suspect]
     Indication: HEPATIC CANCER
     Dosage: 60 MG, BID
     Route: 048
     Dates: start: 20140220, end: 20140331
  5. COROVAL B [Concomitant]
     Indication: HYPERTENSION
  6. ATENOLOL [Concomitant]
     Indication: HYPERTENSION
  7. CALCIUM [CALCIUM] [Concomitant]
     Indication: PROPHYLAXIS
     Dosage: UNK
     Dates: start: 2011
  8. DILAUDID [Concomitant]
     Indication: PAIN IN EXTREMITY
     Dosage: UNK
     Dates: start: 2014
  9. DOCUSATE SODIUM [Concomitant]
     Indication: CONSTIPATION
     Dosage: UNK
     Dates: start: 201209
  10. FENTANYL [Concomitant]
     Indication: ABDOMINAL PAIN
     Dosage: UNK
     Dates: start: 2013
  11. FENTANYL [Concomitant]
     Indication: PAIN IN EXTREMITY
  12. ONDANSETRON HYDROCHLORIDE [Concomitant]
     Indication: NAUSEA
     Dosage: UNK
     Dates: start: 2013
  13. ONDANSETRON HYDROCHLORIDE [Concomitant]
     Indication: VOMITING
  14. LORAZEPAM [Concomitant]
     Indication: ANXIETY
     Dosage: UNK
     Dates: start: 20130829
  15. GABAPENTIN [Concomitant]
     Indication: NEUROPATHY PERIPHERAL
     Dosage: UNK
     Dates: start: 20131108
  16. FERROUS SULFATE [Concomitant]
     Indication: PROPHYLAXIS
     Dosage: UNK
     Dates: start: 2014
  17. OMEPRAZOLE [Concomitant]
     Indication: PROPHYLAXIS
     Dosage: UNK
     Dates: start: 2014
  18. MORPHINE [Concomitant]
     Indication: ABDOMINAL PAIN
     Dosage: UNK
     Dates: start: 20140402
  19. SENNA [SENNA ALEXANDRINA] [Concomitant]
     Indication: CONSTIPATION
     Dosage: UNK
     Dates: start: 20140405
  20. OXYCODONE [Concomitant]
     Indication: ABDOMINAL PAIN
     Dosage: UNK
     Dates: start: 20140405

REACTIONS (5)
  - Gastrointestinal haemorrhage [Recovered/Resolved]
  - Haematemesis [Recovered/Resolved]
  - Anaemia [None]
  - Haemoglobin decreased [None]
  - Gastric disorder [None]
